FAERS Safety Report 11680791 (Version 2)
Quarter: 2015Q4

REPORT INFORMATION
  Report Type: Spontaneous
  Country: US (occurrence: US)
  Receive Date: 20151027
  Receipt Date: 20151104
  Transmission Date: 20160304
  Serious: No
  Sender: FDA-Public Use
  Company Number: US-ELI_LILLY_AND_COMPANY-US201002003672

PATIENT
  Sex: Female

DRUGS (3)
  1. FORTEO [Suspect]
     Active Substance: TERIPARATIDE
     Indication: OSTEOPOROSIS
     Dosage: 20 UG, DAILY (1/D)
     Route: 065
     Dates: start: 2009
  2. INFLUENZA VACCINE [Concomitant]
     Active Substance: INFLUENZA VIRUS VACCINE
  3. FORTEO [Suspect]
     Active Substance: TERIPARATIDE
     Dosage: 20 UG, QD
     Route: 065

REACTIONS (9)
  - Musculoskeletal pain [Unknown]
  - Pyrexia [Unknown]
  - Localised oedema [Unknown]
  - Vascular rupture [Unknown]
  - Pain [Unknown]
  - Arthralgia [Unknown]
  - Muscle spasms [Unknown]
  - Fall [Unknown]
  - Neck pain [Unknown]

NARRATIVE: CASE EVENT DATE: 2009
